FAERS Safety Report 9504103 (Version 3)
Quarter: 2014Q3

REPORT INFORMATION
  Report Type: Spontaneous
  Country: US (occurrence: US)
  Receive Date: 20130906
  Receipt Date: 20140819
  Transmission Date: 20150326
  Serious: Yes (Other)
  Sender: FDA-Public Use
  Company Number: US-BAYER-2013-106570

PATIENT
  Age: 50 Year
  Sex: Female
  Weight: 79.37 kg

DRUGS (3)
  1. OCELLA [Suspect]
     Active Substance: DROSPIRENONE\ETHINYL ESTRADIOL
     Indication: CONTRACEPTION
     Dosage: UNK
     Dates: start: 200404, end: 201110
  2. YASMIN [Suspect]
     Active Substance: DROSPIRENONE\ETHINYL ESTRADIOL
     Indication: CONTRACEPTION
     Dosage: UNK
     Dates: start: 200404, end: 201110
  3. ADVIL [Concomitant]
     Active Substance: IBUPROFEN
     Dosage: OTC

REACTIONS (3)
  - Deep vein thrombosis [None]
  - Injury [None]
  - Thrombophlebitis superficial [None]

NARRATIVE: CASE EVENT DATE: 20111107
